FAERS Safety Report 5383669-7 (Version None)
Quarter: 2007Q3

REPORT INFORMATION
  Report Type: 
  Country: None (occurrence: None)
  Receive Date: 20070706
  Receipt Date: 20070628
  Transmission Date: 20080115
  Serious: Yes (Other)
  Sender: FDA-Public Use
  Company Number: 2007SP013110

PATIENT
  Sex: Male

DRUGS (1)
  1. NITRO-DUR [Suspect]
     Dosage: SEE IMAGE
     Route: 062

REACTIONS (3)
  - HYPERHIDROSIS [None]
  - MYOCARDIAL INFARCTION [None]
  - PHARMACEUTICAL PRODUCT COMPLAINT [None]
